FAERS Safety Report 6978344-9 (Version None)
Quarter: 2010Q3

REPORT INFORMATION
  Report Type: 
  Country: None (occurrence: None)
  Receive Date: 20100913
  Receipt Date: 20100907
  Transmission Date: 20110219
  Serious: Yes (Death, Hospitalization)
  Sender: FDA-Public Use
  Company Number: JP-BAYER-201014143BYL

PATIENT
  Age: 61 Year
  Sex: Male
  Weight: 65 kg

DRUGS (11)
  1. NEXAVAR [Suspect]
     Indication: HEPATIC NEOPLASM MALIGNANT
     Dosage: TOTAL DAILY DOSE: 800 MG  UNIT DOSE: 200 MG
     Route: 048
     Dates: start: 20090608, end: 20090625
  2. NEXAVAR [Suspect]
     Dosage: UNIT DOSE: 200 MG
     Route: 048
     Dates: start: 20090713, end: 20091130
  3. NEXAVAR [Suspect]
     Dosage: UNIT DOSE: 200 MG
     Route: 048
     Dates: start: 20091201, end: 20100111
  4. NEXAVAR [Suspect]
     Dosage: UNIT DOSE: 200 MG
     Route: 048
     Dates: start: 20100201
  5. NEXAVAR [Suspect]
     Dosage: TOTAL DAILY DOSE: 800 MG  UNIT DOSE: 200 MG
     Route: 048
     Dates: end: 20100501
  6. ALDACTONE [Suspect]
     Indication: PRODUCT USED FOR UNKNOWN INDICATION
     Dosage: SINCE BEFORE ADMINISTRATION
     Route: 048
     Dates: end: 20090927
  7. LASIX [Concomitant]
     Dosage: SINCE BEFORE ADMINISTRATION
     Route: 048
  8. LASIX [Concomitant]
     Route: 048
     Dates: start: 20091130
  9. LIVACT [Concomitant]
     Dosage: SINCE BEFORE ADMINISTRATION
     Route: 048
  10. LENDORMIN [Concomitant]
     Indication: INSOMNIA
     Dosage: SINCE BEFORE ADMINISTRATION
     Route: 048
  11. TRITEREN [Concomitant]
     Route: 048
     Dates: start: 20090928

REACTIONS (9)
  - ASCITES [None]
  - CONCOMITANT DISEASE PROGRESSION [None]
  - DIARRHOEA [None]
  - GYNAECOMASTIA [None]
  - HEPATIC NEOPLASM MALIGNANT [None]
  - HYPERTENSION [None]
  - HYPOALBUMINAEMIA [None]
  - MALAISE [None]
  - RASH [None]
